FAERS Safety Report 8633146 (Version 3)
Quarter: 2012Q4

REPORT INFORMATION
  Report Type: 
  Country: US (occurrence: US)
  Receive Date: 20120612
  Receipt Date: 20121120
  Transmission Date: 20130627
  Serious: Yes (Hospitalization, Other)
  Sender: FDA-Public Use
  Company Number: US-MERCK-2012SP029683

PATIENT
  Sex: Male

DRUGS (3)
  1. PEGINTRON [Suspect]
     Indication: HEPATITIS C
     Dosage: UNK UNK
     Dates: start: 20111213
  2. RIBAVIRIN [Suspect]
     Indication: HEPATITIS C
     Dosage: UNK UNK
     Dates: start: 20111213
  3. VICTRELIS [Suspect]
     Indication: HEPATITIS C
     Dosage: UNK UNK
     Dates: start: 20120109

REACTIONS (12)
  - Fluid retention [Unknown]
  - Oedema peripheral [Unknown]
  - Arthritis bacterial [Unknown]
  - Joint stiffness [Unknown]
  - Joint swelling [Unknown]
  - White blood cell count decreased [Unknown]
  - Cyst [Unknown]
  - Memory impairment [Unknown]
  - Confusional state [Unknown]
  - Disturbance in attention [Unknown]
  - Memory impairment [Unknown]
  - Arthralgia [Not Recovered/Not Resolved]
